FAERS Safety Report 18724187 (Version 1)
Quarter: 2021Q1

REPORT INFORMATION
  Report Type: Spontaneous
  Country: FR (occurrence: FR)
  Receive Date: 20210111
  Receipt Date: 20210111
  Transmission Date: 20210419
  Serious: Yes (Hospitalization)
  Sender: FDA-Public Use
  Company Number: FR-TEVA-2021-FR-1866670

PATIENT
  Age: 71 Year
  Sex: Female
  Weight: 76.5 kg

DRUGS (13)
  1. FURADANTINE 50 MG, GELULE [Suspect]
     Active Substance: NITROFURANTOIN
     Indication: CYSTITIS
     Dosage: 300MG
     Route: 048
     Dates: start: 20200817, end: 20200823
  2. GALVUS [Concomitant]
     Active Substance: VILDAGLIPTIN
  3. KARDEGIC [Concomitant]
     Active Substance: ASPIRIN DL-LYSINE
  4. REFRESH CELLUVISC [Concomitant]
     Active Substance: CARBOXYMETHYLCELLULOSE SODIUM
  5. TOUJEO [Concomitant]
     Active Substance: INSULIN GLARGINE
  6. ENALAPRIL (MALEATE D^) [Concomitant]
     Active Substance: ENALAPRIL MALEATE
  7. DULOXETINE (CHLORHYDRATE DE) [Concomitant]
     Active Substance: DULOXETINE
  8. HUMALOG [Concomitant]
     Active Substance: INSULIN LISPRO
  9. PARACETAMOL [Concomitant]
     Active Substance: ACETAMINOPHEN
  10. LERCAN [Concomitant]
     Active Substance: LERCANIDIPINE
  11. PRAVASTATINE SODIQUE [Concomitant]
     Active Substance: PRAVASTATIN SODIUM
  12. TRAMADOL (CHLORHYDRATE DE) [Concomitant]
     Active Substance: TRAMADOL HYDROCHLORIDE
  13. METFORMINE [Concomitant]
     Active Substance: METFORMIN HYDROCHLORIDE

REACTIONS (5)
  - Toxic skin eruption [Recovered/Resolved]
  - Rash maculo-papular [Recovered/Resolved]
  - Rash pruritic [Recovered/Resolved]
  - Eosinophilia [Recovered/Resolved]
  - Diarrhoea [Recovered/Resolved]

NARRATIVE: CASE EVENT DATE: 20200818
